FAERS Safety Report 6307594-X (Version None)
Quarter: 2009Q3

REPORT INFORMATION
  Report Type: 
  Country: None (occurrence: None)
  Receive Date: 20090813
  Receipt Date: 20090803
  Transmission Date: 20100115
  Serious: Yes (Hospitalization, Other)
  Sender: FDA-Public Use
  Company Number: US-NAPPMUNDI-USA-2009-0038866

PATIENT
  Sex: Female

DRUGS (3)
  1. OXYCONTIN [Suspect]
     Indication: PAIN
     Dosage: UNK
     Dates: start: 20040809, end: 20050823
  2. OXYCODONE HYDROCHLORIDE [Suspect]
     Indication: PAIN
     Dosage: UNK
     Dates: start: 20050823, end: 20060913
  3. ANTIHYPERTENSIVES [Suspect]

REACTIONS (3)
  - DRUG DEPENDENCE [None]
  - DRUG WITHDRAWAL SYNDROME [None]
  - SUICIDE ATTEMPT [None]
